FAERS Safety Report 18372452 (Version 7)
Quarter: 2022Q1

REPORT INFORMATION
  Report Type: Spontaneous
  Country: US (occurrence: US)
  Receive Date: 20201012
  Receipt Date: 20220107
  Transmission Date: 20220424
  Serious: No
  Sender: FDA-Public Use
  Company Number: US-PFIZER INC-2020198748

PATIENT
  Age: 55 Year
  Sex: Female
  Weight: 93.89 kg

DRUGS (9)
  1. SUTENT [Suspect]
     Active Substance: SUNITINIB MALATE
     Indication: Renal cell carcinoma stage IV
     Dosage: 37.5 MG, CYCLIC (14 DAYS ON AND 7 DAYS OFF)
     Dates: start: 2017
  2. SUTENT [Suspect]
     Active Substance: SUNITINIB MALATE
     Indication: Renal cancer
     Dosage: 37.5 MG, CYCLIC (DAILY FOR 11 DAYS ON AND 10 DAYS OFF)
     Route: 048
  3. SUTENT [Suspect]
     Active Substance: SUNITINIB MALATE
     Dosage: 37.5 MG, CYCLIC (37.5 BY MOUTH DAILY FOR 11 DAYS OUT OF EVERY 21 DAYS)
     Route: 048
  4. SUTENT [Suspect]
     Active Substance: SUNITINIB MALATE
     Dosage: 37.5 MG
  5. SUTENT [Suspect]
     Active Substance: SUNITINIB MALATE
     Dosage: 37.5 MG
     Dates: start: 20210728
  6. SUTENT [Suspect]
     Active Substance: SUNITINIB MALATE
     Dosage: 37.5 MG, CYCLIC (FOR 11 DAYS EVERY 21 DAYS)
     Route: 048
  7. CLARITIN [Concomitant]
     Active Substance: LORATADINE
     Indication: Hypersensitivity
     Dosage: 10 MG, DAILY
     Dates: start: 2019
  8. SYNTHROID [Concomitant]
     Active Substance: LEVOTHYROXINE SODIUM
     Indication: Thyroid disorder
     Dosage: 88 UG, DAILY
     Dates: start: 2012
  9. AMOXICILLIN [Concomitant]
     Active Substance: AMOXICILLIN
     Indication: Sinusitis
     Dosage: UNK, AS NEEDED

REACTIONS (10)
  - Gastrointestinal disorder [Unknown]
  - Diarrhoea [Unknown]
  - Hyperkeratosis [Recovered/Resolved]
  - Gait disturbance [Recovered/Resolved]
  - Scar [Unknown]
  - Blood pressure increased [Unknown]
  - Weight decreased [Unknown]
  - Hair colour changes [Unknown]
  - Rotator cuff syndrome [Unknown]
  - Limb discomfort [Unknown]
